FAERS Safety Report 20231487 (Version 1)
Quarter: 2021Q4

REPORT INFORMATION
  Report Type: Spontaneous
  Country: US (occurrence: None)
  Receive Date: 20211223
  Receipt Date: 20211223
  Transmission Date: 20220304
  Serious: Yes (Other)
  Sender: FDA-Public Use
  Company Number: None

PATIENT
  Age: 69 Year
  Sex: Female
  Weight: 113.9 kg

DRUGS (1)
  1. PRIVIGEN [Suspect]
     Active Substance: HUMAN IMMUNOGLOBULIN G
     Indication: Myasthenia gravis
     Dosage: OTHER FREQUENCY : MONTHLY;?
     Route: 042
     Dates: start: 20140901

REACTIONS (5)
  - Throat irritation [None]
  - Pruritus [None]
  - Urticaria [None]
  - Infusion site pruritus [None]
  - Infusion related reaction [None]

NARRATIVE: CASE EVENT DATE: 20211221
